FAERS Safety Report 20526201 (Version 1)
Quarter: 2022Q1

REPORT INFORMATION
  Report Type: Spontaneous
  Country: US (occurrence: US)
  Receive Date: 20220228
  Receipt Date: 20220228
  Transmission Date: 20220424
  Serious: No
  Sender: FDA-Public Use
  Company Number: US-GSKCCFUS-Case-01301580_AE-75827

PATIENT
  Age: 57 Year
  Sex: Female

DRUGS (1)
  1. ADVAIR DISKUS [Suspect]
     Active Substance: FLUTICASONE PROPIONATE\SALMETEROL XINAFOATE
     Indication: Product used for unknown indication
     Dosage: 1 PUFF(S), BID, 250/50 MCG
     Route: 055

REACTIONS (3)
  - Limb discomfort [Unknown]
  - Chest discomfort [Unknown]
  - Discomfort [Unknown]

NARRATIVE: CASE EVENT DATE: 20220201
